FAERS Safety Report 6958302-0 (Version None)
Quarter: 2010Q3

REPORT INFORMATION
  Report Type: 
  Country: None (occurrence: None)
  Receive Date: 20100831
  Receipt Date: 20100826
  Transmission Date: 20110219
  Serious: Yes (Other)
  Sender: FDA-Public Use
  Company Number: A0877882A

PATIENT
  Age: 84 Year
  Sex: Female

DRUGS (7)
  1. VOTRIENT [Suspect]
     Dosage: 800MG PER DAY
     Route: 048
     Dates: start: 20100501
  2. IRON [Concomitant]
  3. PRAVASTATIN [Concomitant]
  4. ASCORBIC ACID [Concomitant]
  5. VITAMIN D [Concomitant]
  6. LASIX [Concomitant]
  7. POTASSIUM [Concomitant]

REACTIONS (3)
  - HAEMORRHAGE [None]
  - LOCAL SWELLING [None]
  - SKIN PAPILLOMA [None]
